FAERS Safety Report 23483398 (Version 2)
Quarter: 2024Q1

REPORT INFORMATION
  Report Type: Spontaneous
  Country: US (occurrence: US)
  Receive Date: 20240205
  Receipt Date: 20240312
  Transmission Date: 20240410
  Serious: No
  Sender: FDA-Public Use
  Company Number: US-PFIZER INC-PV202400014822

PATIENT
  Age: 70 Year
  Sex: Female

DRUGS (1)
  1. IBRANCE [Suspect]
     Active Substance: PALBOCICLIB
     Dosage: 100 MG, DAILY (TAKE 1 TABLET 100 MG BY MOUTH DAILY, FOR 21 DAYS, THEN TAKE 7 DAYS OFF)
     Route: 048

REACTIONS (1)
  - Nasopharyngitis [Unknown]
